FAERS Safety Report 12263524 (Version 1)
Quarter: 2016Q2

REPORT INFORMATION
  Report Type: Spontaneous
  Country: US (occurrence: US)
  Receive Date: 20160413
  Receipt Date: 20160413
  Transmission Date: 20160815
  Serious: No
  Sender: FDA-Public Use
  Company Number: US-JNJFOC-20160221906

PATIENT
  Age: 50 Year
  Sex: Female
  Weight: 77.11 kg

DRUGS (1)
  1. TYLENOL EXTRA STRENGTH [Suspect]
     Active Substance: ACETAMINOPHEN
     Indication: ANALGESIC THERAPY
     Dosage: 500 MG 4 TABLETS EVERY SIX HOURS
     Route: 048

REACTIONS (3)
  - Product use issue [Unknown]
  - Overdose [Unknown]
  - Off label use [Unknown]
